FAERS Safety Report 4949055-6 (Version None)
Quarter: 2006Q1

REPORT INFORMATION
  Report Type: 
  Country: None (occurrence: None)
  Receive Date: 20060321
  Receipt Date: 20060310
  Transmission Date: 20060701
  Serious: Yes (Life-Threatening)
  Sender: FDA-Public Use
  Company Number: DE-GLAXOSMITHKLINE-B0416124A

PATIENT
  Age: 69 Year
  Sex: Female

DRUGS (1)
  1. FONDAPARINUX [Suspect]
     Indication: ACUTE MYOCARDIAL INFARCTION
     Dosage: 2.5MG PER DAY
     Route: 058
     Dates: start: 20050817

REACTIONS (4)
  - CARDIAC PROCEDURE COMPLICATION [None]
  - CORONARY ARTERY THROMBOSIS [None]
  - DRUG EFFECT DECREASED [None]
  - POSTOPERATIVE THROMBOSIS [None]
